FAERS Safety Report 5719306-9 (Version None)
Quarter: 2008Q2

REPORT INFORMATION
  Report Type: 
  Country: None (occurrence: None)
  Receive Date: 20080425
  Receipt Date: 20080425
  Transmission Date: 20081010
  Serious: Yes (Life-Threatening, Disabling)
  Sender: FDA-Public Use
  Company Number: None

PATIENT
  Age: 60 Year
  Sex: Female
  Weight: 71.6683 kg

DRUGS (6)
  1. LYRICA [Suspect]
     Indication: FACIAL PAIN
     Dosage: 75 MG TAKEN VARIOUSLY 1,2 OR 3 TIMES DAILY (FOR TOTAL OF EITHER 75,150 OR 225 MG)
     Dates: start: 20080118, end: 20080206
  2. LYRICA [Suspect]
     Indication: TRIGEMINAL NEURALGIA
     Dosage: 75 MG TAKEN VARIOUSLY 1,2 OR 3 TIMES DAILY (FOR TOTAL OF EITHER 75,150 OR 225 MG)
     Dates: start: 20080118, end: 20080206
  3. SYNTHROID [Concomitant]
  4. ESTRACE [Concomitant]
  5. MEDROL [Concomitant]
  6. AMOXICILLIN [Concomitant]

REACTIONS (48)
  - ABASIA [None]
  - ABNORMAL BEHAVIOUR [None]
  - ADVERSE DRUG REACTION [None]
  - ANGER [None]
  - ANXIETY [None]
  - ARTHRALGIA [None]
  - ASTHENIA [None]
  - BALANCE DISORDER [None]
  - CHILLS [None]
  - CONDITION AGGRAVATED [None]
  - CONFUSIONAL STATE [None]
  - DEPRESSION [None]
  - DIPLOPIA [None]
  - DRUG INEFFECTIVE [None]
  - DRUG WITHDRAWAL SYNDROME [None]
  - DYSKINESIA [None]
  - DYSPNOEA [None]
  - DYSSTASIA [None]
  - FACIAL PAIN [None]
  - FEAR [None]
  - FEELING ABNORMAL [None]
  - GAIT DISTURBANCE [None]
  - HYPERHIDROSIS [None]
  - ILL-DEFINED DISORDER [None]
  - INSOMNIA [None]
  - LETHARGY [None]
  - MALAISE [None]
  - MENTAL DISORDER [None]
  - MUSCLE STRAIN [None]
  - MUSCLE TWITCHING [None]
  - MYALGIA [None]
  - NIGHTMARE [None]
  - PAIN [None]
  - PAIN IN JAW [None]
  - PARAESTHESIA [None]
  - PERSONALITY DISORDER [None]
  - POISONING [None]
  - PULMONARY OEDEMA [None]
  - PYREXIA [None]
  - RASH PUSTULAR [None]
  - RHINORRHOEA [None]
  - SINUSITIS [None]
  - SOMNOLENCE [None]
  - TREMOR [None]
  - TRIGEMINAL NEURALGIA [None]
  - URINARY INCONTINENCE [None]
  - VISION BLURRED [None]
  - WEIGHT INCREASED [None]
